FAERS Safety Report 4805865-7 (Version None)
Quarter: 2005Q4

REPORT INFORMATION
  Report Type: 
  Country: None (occurrence: None)
  Receive Date: 20051018
  Receipt Date: 20040817
  Transmission Date: 20060501
  Serious: Yes (Other)
  Sender: FDA-Public Use
  Company Number: CC04-038

PATIENT
  Sex: Female
  Weight: 63.5036 kg

DRUGS (3)
  1. ALBUTEROL [Suspect]
     Indication: ASTHMA
     Dosage: 180 MCG, QID INHALATION; CHRONIC
     Route: 055
  2. FLOVENT [Concomitant]
  3. PREVACOL [Concomitant]

REACTIONS (2)
  - CHEST PAIN [None]
  - PAIN [None]
